FAERS Safety Report 18757652 (Version 1)
Quarter: 2021Q1

REPORT INFORMATION
  Report Type: Spontaneous
  Country: SE (occurrence: SE)
  Receive Date: 20210119
  Receipt Date: 20210119
  Transmission Date: 20210419
  Serious: Yes (Hospitalization)
  Sender: FDA-Public Use
  Company Number: SE-GALDERMA-SE2021000740

PATIENT
  Sex: Male
  Weight: 64 kg

DRUGS (1)
  1. EPIDUO [Suspect]
     Active Substance: ADAPALENE\BENZOYL PEROXIDE
     Indication: ACNE
     Dosage: 0.1%/2.5%
     Route: 065

REACTIONS (2)
  - Periorbital swelling [Recovered/Resolved]
  - Periorbital irritation [Recovered/Resolved]
